FAERS Safety Report 6945565-0 (Version None)
Quarter: 2010Q3

REPORT INFORMATION
  Report Type: 
  Country: None (occurrence: None)
  Receive Date: 20100827
  Receipt Date: 20100823
  Transmission Date: 20110219
  Serious: Yes (Other)
  Sender: FDA-Public Use
  Company Number: GB-ROCHE-723172

PATIENT
  Age: 57 Year
  Sex: Female

DRUGS (8)
  1. NAPROXEN [Suspect]
     Indication: PRODUCT USED FOR UNKNOWN INDICATION
     Route: 065
  2. CELECOXIB [Suspect]
     Indication: PRODUCT USED FOR UNKNOWN INDICATION
     Route: 048
  3. ASPIRIN [Concomitant]
  4. LANSOPRAZOLE [Concomitant]
  5. SERTRALINE HYDROCHLORIDE [Concomitant]
  6. SIMVASTATIN [Concomitant]
  7. THIAMINE HCL [Concomitant]
     Dosage: ACTIVE CONSTITUENTS: THIAMINE, VITAMIN B SUBSTANCES
  8. VITAMIN B COMPLEX CAP [Concomitant]
     Dosage: ACTIVE CONSTITUENTS: NICOTINAMIDE,RIBOFLAVINE,THIAMINE HYDROCHLORIDE

REACTIONS (2)
  - CAROTID ARTERY DISEASE [None]
  - CEREBRAL INFARCTION [None]
